FAERS Safety Report 8471411-2 (Version None)
Quarter: 2012Q2

REPORT INFORMATION
  Report Type: 
  Country: None (occurrence: None)
  Receive Date: 20120627
  Receipt Date: 20120625
  Transmission Date: 20120825
  Serious: Yes (Other)
  Sender: FDA-Public Use
  Company Number: VE-ROCHE-1081864

PATIENT
  Sex: Female
  Weight: 65 kg

DRUGS (2)
  1. PACLITAXEL [Concomitant]
     Indication: BREAST CANCER
     Route: 041
     Dates: start: 20120201
  2. BEVACIZUMAB [Suspect]
     Indication: BREAST CANCER
     Route: 041
     Dates: start: 20120201

REACTIONS (1)
  - OPHTHALMOPLEGIA [None]
